FAERS Safety Report 8180290-2 (Version None)
Quarter: 2012Q1

REPORT INFORMATION
  Report Type: 
  Country: None (occurrence: None)
  Receive Date: 20120229
  Receipt Date: 20120221
  Transmission Date: 20120608
  Serious: Yes (Hospitalization)
  Sender: FDA-Public Use
  Company Number: 1204440

PATIENT
  Age: 9 Year
  Sex: Male

DRUGS (3)
  1. METHOTREXATE [Suspect]
     Indication: ACUTE LYMPHOCYTIC LEUKAEMIA
  2. VINCRISTINE SULFATE [Suspect]
     Indication: ACUTE LYMPHOCYTIC LEUKAEMIA
  3. DOXORUBICIN HCL [Suspect]
     Indication: ACUTE LEUKAEMIA

REACTIONS (3)
  - PYREXIA [None]
  - NEUTROPENIA [None]
  - CAECITIS [None]
